FAERS Safety Report 4751627-9 (Version None)
Quarter: 2005Q3

REPORT INFORMATION
  Report Type: 
  Country: None (occurrence: None)
  Receive Date: 20050822
  Receipt Date: 20050811
  Transmission Date: 20060218
  Serious: Yes (Death, Hospitalization)
  Sender: FDA-Public Use
  Company Number: 2005114445

PATIENT
  Age: 74 Year
  Sex: Male

DRUGS (6)
  1. PREDNISONE [Suspect]
     Indication: DERMATITIS
     Dosage: 40 MG (20 MG, 2 IN 1 D), ORAL
     Route: 048
     Dates: start: 20050609, end: 20050619
  2. WARFARIN (WARFARIN) [Concomitant]
  3. FINASTERIDE [Concomitant]
  4. RANITIDINE HCL [Concomitant]
  5. ALLOPURINOL [Concomitant]
  6. OXYTETRACYCLINE [Concomitant]

REACTIONS (4)
  - HYPOPROTEINAEMIA [None]
  - PUSTULAR PSORIASIS [None]
  - RENAL IMPAIRMENT [None]
  - SEPSIS [None]
